FAERS Safety Report 12342309 (Version 3)
Quarter: 2016Q2

REPORT INFORMATION
  Report Type: Spontaneous
  Country: US (occurrence: US)
  Receive Date: 20160506
  Receipt Date: 20160630
  Transmission Date: 20160815
  Serious: No
  Sender: FDA-Public Use
  Company Number: US-PFIZER INC-2016203436

PATIENT
  Age: 48 Year
  Sex: Female
  Weight: 87.53 kg

DRUGS (3)
  1. HYDROCODONE [Concomitant]
     Active Substance: HYDROCODONE
     Indication: PAIN
     Dosage: UNK (7.5-325 MG)
  2. LISINOPRIL. [Concomitant]
     Active Substance: LISINOPRIL
     Indication: HYPERTENSION
     Dosage: 20 MG, 1X/DAY
  3. EMBEDA [Suspect]
     Active Substance: MORPHINE SULFATE\NALTREXONE HYDROCHLORIDE
     Indication: PAIN
     Dosage: 20 MG, 1X/DAY
     Route: 048
     Dates: start: 20160128, end: 20160328

REACTIONS (2)
  - Glucose tolerance impaired [Unknown]
  - Gait disturbance [Unknown]

NARRATIVE: CASE EVENT DATE: 201603
